FAERS Safety Report 23152827 (Version 2)
Quarter: 2023Q4

REPORT INFORMATION
  Report Type: Spontaneous
  Country: BR (occurrence: BR)
  Receive Date: 20231107
  Receipt Date: 20231110
  Transmission Date: 20240109
  Serious: Yes (Other)
  Sender: FDA-Public Use
  Company Number: BR-SA-SAC20231101001474

PATIENT
  Age: 76 Year
  Sex: Female
  Weight: 60 kg

DRUGS (10)
  1. LANTUS SOLOSTAR [Suspect]
     Active Substance: INSULIN GLARGINE
     Indication: Diabetes mellitus
     Dosage: 20 IU, BID
     Route: 030
     Dates: start: 2018
  2. PREGABALIN [Suspect]
     Active Substance: PREGABALIN
     Indication: Pain
     Dosage: 2 DF, Q12H
     Route: 048
     Dates: start: 202304
  3. INDAPAMIDE [Concomitant]
     Active Substance: INDAPAMIDE
     Indication: Diabetes mellitus
     Dosage: 1 DF, QD
     Route: 048
     Dates: start: 2013
  4. ROSUVASTATIN [Concomitant]
     Active Substance: ROSUVASTATIN
     Dosage: 1 TABLET AFTER DINNER
     Route: 048
     Dates: start: 2013
  5. NESINA [Concomitant]
     Active Substance: ALOGLIPTIN BENZOATE
     Indication: Diabetes mellitus
     Dosage: 1 TABLET IN THE MORNING
     Route: 048
     Dates: start: 2013
  6. AMITRIPTYLINE [Concomitant]
     Active Substance: AMITRIPTYLINE
     Indication: Depression
     Dosage: 1 TABLET AT NIGHT
     Route: 048
     Dates: start: 2013
  7. DIPYRONE [Concomitant]
     Active Substance: DIPYRONE
     Indication: Pain
     Dosage: UNK, Q4H
     Route: 048
     Dates: start: 2023
  8. CORUS [LOSARTAN POTASSIUM] [Concomitant]
     Dosage: TWICE A DAY
     Route: 048
     Dates: start: 2013
  9. TRAMADOL [Concomitant]
     Active Substance: TRAMADOL\TRAMADOL HYDROCHLORIDE
     Indication: Pain
     Dosage: 4 EVERY 4 HOURS
     Route: 048
     Dates: start: 2023
  10. ALPRAZOLAM [Concomitant]
     Active Substance: ALPRAZOLAM
     Indication: Sleep disorder
     Dosage: ONCE A NIGHT
     Route: 048
     Dates: start: 202308

REACTIONS (5)
  - Cervical vertebral fracture [Unknown]
  - Fall [Unknown]
  - Product storage error [Unknown]
  - Incorrect route of product administration [Unknown]
  - Inappropriate schedule of product administration [Unknown]

NARRATIVE: CASE EVENT DATE: 20180101
